FAERS Safety Report 8552222 (Version 10)
Quarter: 2013Q3

REPORT INFORMATION
  Report Type: Spontaneous
  Country: JP (occurrence: JP)
  Receive Date: 20120508
  Receipt Date: 20130725
  Transmission Date: 20140515
  Serious: Yes (Life-Threatening, Hospitalization, Other)
  Sender: FDA-Public Use
  Company Number: PHHY2012JP036805

PATIENT
  Age: 20 Year
  Sex: Male
  Weight: 54 kg

DRUGS (17)
  1. CLOZARIL [Suspect]
     Indication: SCHIZOPHRENIA, PARANOID TYPE
     Dosage: 12.5 MG, UNK
     Route: 048
     Dates: start: 20120410, end: 20120410
  2. CLOZARIL [Suspect]
     Dosage: 25 MG, UNK
     Route: 048
     Dates: start: 20120411, end: 20120412
  3. CLOZARIL [Suspect]
     Dosage: 50 MG, UNK
     Route: 048
     Dates: start: 20120413, end: 20120415
  4. CLOZARIL [Suspect]
     Dosage: 75 MG, UNK
     Route: 048
     Dates: start: 20120416, end: 20120417
  5. CLOZARIL [Suspect]
     Dosage: 100 MG, UNK
     Route: 048
     Dates: start: 20120418, end: 20120419
  6. CLOZARIL [Suspect]
     Dosage: 125 MG, UNK
     Route: 048
     Dates: start: 20120420, end: 20120422
  7. CLOZARIL [Suspect]
     Dosage: 150 MG, UNK
     Route: 048
     Dates: start: 20120423, end: 20120424
  8. CLOZARIL [Suspect]
     Dosage: 100 MG, UNK
     Route: 048
     Dates: start: 20120425, end: 20120425
  9. CLOZARIL [Suspect]
     Dosage: 50 MG, UNK
     Route: 048
     Dates: start: 20120426, end: 20120426
  10. VOLTAREN [Concomitant]
     Dosage: 25 MG, 4 TIMES PER DAY
     Dates: start: 20120424, end: 20120427
  11. ZYPREXA [Concomitant]
     Dosage: 10 MG, UNK
     Route: 048
     Dates: start: 20120410
  12. ZYPREXA [Concomitant]
     Dosage: 20 MG, UNK
     Route: 048
  13. LIMAS [Concomitant]
     Indication: SCHIZOPHRENIA, PARANOID TYPE
     Dosage: 400 MG, UNK
     Route: 048
     Dates: start: 20120410
  14. LAMICTAL [Concomitant]
     Dosage: 100 MG, UNK
     Route: 048
     Dates: start: 20120410
  15. LAMICTAL [Concomitant]
     Dosage: 75 MG, UNK
     Route: 048
  16. LAMICTAL [Concomitant]
     Dosage: 25 MG, UNK
     Route: 048
     Dates: end: 20120420
  17. GASTER D [Concomitant]
     Indication: PROPHYLAXIS
     Dosage: 20 MG, UNK
     Route: 048
     Dates: start: 20120425, end: 20120426

REACTIONS (19)
  - Cardiomyopathy [Recovered/Resolved]
  - Ejection fraction decreased [Recovered/Resolved]
  - Left ventricular failure [Recovered/Resolved]
  - Shock [Recovered/Resolved]
  - Renal disorder [Unknown]
  - Renal impairment [Unknown]
  - Pulmonary congestion [Unknown]
  - Cardiac failure [Recovering/Resolving]
  - Pyrexia [Recovering/Resolving]
  - Myocarditis [Recovered/Resolved]
  - C-reactive protein increased [Recovered/Resolved]
  - Ileus paralytic [Recovered/Resolved]
  - Dehydration [Unknown]
  - Eating disorder [Unknown]
  - Hyperphosphatasaemia [Unknown]
  - Hypotension [Unknown]
  - Constipation [Recovered/Resolved]
  - Delusion [Unknown]
  - White blood cell count increased [Unknown]
